FAERS Safety Report 11707630 (Version 1)
Quarter: 2015Q4

REPORT INFORMATION
  Report Type: Spontaneous
  Country: US (occurrence: US)
  Receive Date: 20151104
  Receipt Date: 20151104
  Transmission Date: 20160304
  Serious: Yes (Hospitalization)
  Sender: FDA-Public Use
  Company Number: US-ELI_LILLY_AND_COMPANY-US201101002682

PATIENT
  Age: 66 Year
  Sex: Female

DRUGS (20)
  1. FORTEO [Suspect]
     Active Substance: TERIPARATIDE
     Indication: OSTEOPOROSIS
     Dosage: 20 UG, DAILY (1/D)
  2. OMEPRAZOLE. [Concomitant]
     Active Substance: OMEPRAZOLE
  3. ACTONEL [Concomitant]
     Active Substance: RISEDRONATE SODIUM
  4. ALPRAZOLAM. [Concomitant]
     Active Substance: ALPRAZOLAM
  5. VITAMINS NOS [Concomitant]
     Active Substance: VITAMINS
  6. FLUTICASONE [Concomitant]
     Active Substance: FLUTICASONE\FLUTICASONE PROPIONATE
  7. MURELAX [Concomitant]
  8. FLUOXETINE [Concomitant]
     Active Substance: FLUOXETINE HYDROCHLORIDE
  9. K-DUR [Concomitant]
     Active Substance: POTASSIUM CHLORIDE
  10. EYE DROPS [Concomitant]
     Active Substance: TETRAHYDROZOLINE HYDROCHLORIDE
  11. TYLENOL EXTRA STRENGTH [Concomitant]
     Active Substance: ACETAMINOPHEN
  12. DIOVAN [Concomitant]
     Active Substance: VALSARTAN
  13. CALCIUM 500+D3 [Concomitant]
  14. FORTEO [Suspect]
     Active Substance: TERIPARATIDE
     Dosage: 20 UG, DAILY (1/D)
  15. AMLODINE [Concomitant]
     Active Substance: AMLODIPINE BESYLATE
  16. DIGOXIN. [Concomitant]
     Active Substance: DIGOXIN
  17. LEVOTHYROXIN [Concomitant]
     Active Substance: LEVOTHYROXINE
  18. PANTOPRAZOLE [Concomitant]
     Active Substance: PANTOPRAZOLE SODIUM
  19. VITAMIN D [Concomitant]
     Active Substance: CHOLECALCIFEROL
  20. BACLOFEN. [Concomitant]
     Active Substance: BACLOFEN

REACTIONS (14)
  - Pneumonia [Unknown]
  - Drug dose omission [Unknown]
  - Feeling abnormal [Unknown]
  - Intentional product misuse [Unknown]
  - Nausea [Unknown]
  - Weight increased [Unknown]
  - Memory impairment [Unknown]
  - Depression [Unknown]
  - Swelling [Unknown]
  - Abdominal pain upper [Unknown]
  - Vomiting [Unknown]
  - Cognitive disorder [Unknown]
  - Back pain [Unknown]
  - Malaise [Unknown]

NARRATIVE: CASE EVENT DATE: 20100927
